FAERS Safety Report 7121013-5 (Version None)
Quarter: 2010Q4

REPORT INFORMATION
  Report Type: 
  Country: None (occurrence: None)
  Receive Date: 20101124
  Receipt Date: 20100305
  Transmission Date: 20110411
  Serious: No
  Sender: FDA-Public Use
  Company Number: US-PFIZER INC-2010029206

PATIENT
  Sex: Male
  Weight: 140.59 kg

DRUGS (3)
  1. TIKOSYN [Suspect]
     Indication: ATRIAL FIBRILLATION
     Dosage: 250 UG, 2X/DAY
     Route: 048
     Dates: start: 20100301
  2. COUMADIN [Concomitant]
     Dosage: UNK
  3. CARDIZEM [Concomitant]
     Dosage: UNK

REACTIONS (2)
  - DIARRHOEA [None]
  - RED BLOOD CELL COUNT INCREASED [None]
